FAERS Safety Report 13541752 (Version 1)
Quarter: 2017Q2

REPORT INFORMATION
  Report Type: Report from Study
  Country: US (occurrence: US)
  Receive Date: 20170512
  Receipt Date: 20170512
  Transmission Date: 20170830
  Serious: Yes (Hospitalization, Other)
  Sender: FDA-Public Use
  Company Number: US-GLAXOSMITHKLINE-US2017GSK060249

PATIENT
  Age: 0 Day
  Sex: Female
  Weight: 86.7 kg

DRUGS (13)
  1. FERROUS SULFATE. [Concomitant]
     Active Substance: FERROUS SULFATE
  2. CANAKINUMAB [Suspect]
     Active Substance: CANAKINUMAB
  3. CICLOSPORIN [Suspect]
     Active Substance: CYCLOSPORINE
  4. ANAKINRA [Suspect]
     Active Substance: ANAKINRA
  5. DICLOFENAC SODIUM. [Suspect]
     Active Substance: DICLOFENAC SODIUM
     Indication: JUVENILE IDIOPATHIC ARTHRITIS
     Dosage: UNK
     Dates: start: 20151209, end: 20160113
  6. NABUMETONE. [Suspect]
     Active Substance: NABUMETONE
  7. LORATADINE. [Concomitant]
     Active Substance: LORATADINE
  8. NAPROXEN. [Suspect]
     Active Substance: NAPROXEN
  9. TOCILIZUMAB [Suspect]
     Active Substance: TOCILIZUMAB
  10. OMEPRAZOLE. [Concomitant]
     Active Substance: OMEPRAZOLE
  11. PREDNISONE. [Concomitant]
     Active Substance: PREDNISONE
  12. ADALIMUMAB [Suspect]
     Active Substance: ADALIMUMAB
  13. ENALAPRIL [Concomitant]
     Active Substance: ENALAPRIL

REACTIONS (12)
  - Escherichia urinary tract infection [Unknown]
  - Hepatic steatosis [Unknown]
  - Flank pain [Unknown]
  - Transaminases increased [Unknown]
  - Infection [Unknown]
  - Oropharyngeal pain [Unknown]
  - Cough [Unknown]
  - Dysuria [Unknown]
  - Pyrexia [Unknown]
  - Chills [Unknown]
  - Disorientation [Unknown]
  - Dizziness [Unknown]

NARRATIVE: CASE EVENT DATE: 20090203
